FAERS Safety Report 8515464-1 (Version None)
Quarter: 2012Q3

REPORT INFORMATION
  Report Type: 
  Country: None (occurrence: None)
  Receive Date: 20120717
  Receipt Date: 20120710
  Transmission Date: 20120928
  Serious: Yes (Other)
  Sender: FDA-Public Use
  Company Number: CA-ELI_LILLY_AND_COMPANY-CA201207002848

PATIENT
  Age: 53 Year
  Sex: Male

DRUGS (3)
  1. EFFIENT [Suspect]
     Indication: CORONARY ARTERY OCCLUSION
     Dosage: 10 MG, QD
     Route: 065
  2. WARFARIN SODIUM [Concomitant]
  3. ASPIRIN [Concomitant]

REACTIONS (2)
  - CORONARY ARTERY OCCLUSION [None]
  - THROMBOSIS [None]
